FAERS Safety Report 7396514-5 (Version None)
Quarter: 2011Q2

REPORT INFORMATION
  Report Type: 
  Country: None (occurrence: None)
  Receive Date: 20110406
  Receipt Date: 20110325
  Transmission Date: 20111010
  Serious: Yes (Hospitalization, Other)
  Sender: FDA-Public Use
  Company Number: FR-BRISTOL-MYERS SQUIBB COMPANY-15649791

PATIENT
  Age: 65 Year
  Sex: Female

DRUGS (9)
  1. LEPTICUR [Suspect]
     Dosage: TABS; 1DF:10MG
     Route: 048
     Dates: end: 20101104
  2. GLUCOPHAGE [Suspect]
     Indication: TYPE 2 DIABETES MELLITUS
  3. LYRICA [Suspect]
     Dosage: CAPS; 1DF:150MG
     Route: 048
     Dates: end: 20101104
  4. NORSET [Suspect]
     Dosage: TABS; 1DF:15MG
     Route: 048
     Dates: start: 20100601, end: 20101104
  5. SOLIAN [Suspect]
     Dosage: TABS; 1DF:0.5 DF(400MG TABS)
     Route: 048
     Dates: end: 20101104
  6. SERESTA [Suspect]
     Dosage: TABS; 1DF:50MG
     Route: 048
     Dates: end: 20101104
  7. LEVOTHYROX [Concomitant]
     Dosage: LEVOTHYROX 120 TABS
     Route: 048
  8. BI-PROFENID [Suspect]
     Route: 030
     Dates: start: 20101001, end: 20101001
  9. TERALITHE [Suspect]
     Dosage: 1DF:250MG; TABS
     Route: 048
     Dates: start: 20100601, end: 20101104

REACTIONS (4)
  - DIARRHOEA [None]
  - DEHYDRATION [None]
  - RENAL FAILURE ACUTE [None]
  - HYPOTENSION [None]
